FAERS Safety Report 6104972-9 (Version None)
Quarter: 2009Q1

REPORT INFORMATION
  Report Type: 
  Country: None (occurrence: None)
  Receive Date: 20090306
  Receipt Date: 20090227
  Transmission Date: 20090719
  Serious: Yes (Other)
  Sender: FDA-Public Use
  Company Number: GB-AMGEN-UK332517

PATIENT
  Sex: Male
  Weight: 61 kg

DRUGS (6)
  1. KINERET [Suspect]
     Indication: RHEUMATOID ARTHRITIS
     Dates: start: 20020916, end: 20021015
  2. ALENDRONATE SODIUM [Concomitant]
  3. DICLOFENAC [Concomitant]
  4. FOLIC ACID [Concomitant]
  5. PREDNISOLONE [Concomitant]
  6. METHOTREXATE [Concomitant]

REACTIONS (1)
  - SKIN CANCER [None]
